FAERS Safety Report 8058948-5 (Version None)
Quarter: 2012Q1

REPORT INFORMATION
  Report Type: 
  Country: None (occurrence: None)
  Receive Date: 20120120
  Receipt Date: 20120112
  Transmission Date: 20120608
  Serious: Yes (Hospitalization)
  Sender: FDA-Public Use
  Company Number: ES-ASTELLAS-2012US000522

PATIENT
  Sex: Female
  Weight: 61 kg

DRUGS (6)
  1. CAPECITABINE [Suspect]
     Dosage: UNK
     Route: 048
  2. CAPECITABINE [Suspect]
     Indication: PANCREATIC CARCINOMA
     Dosage: 830 MG/M2, Q12 HOURS DAY 1-21, 28 DAY CYCLE
     Route: 048
     Dates: start: 20111221
  3. GEMCITABINE [Suspect]
     Dosage: UNK
     Route: 042
  4. GEMCITABINE [Suspect]
     Indication: PANCREATIC CARCINOMA
     Dosage: 1580 MG, DAYS 1, 8, 15 - 28 DAYS CYCLE
     Route: 042
     Dates: start: 20111221, end: 20111227
  5. ERLOTINIB HYDROCHLORIDE [Suspect]
     Dosage: UNK
     Route: 048
  6. ERLOTINIB HYDROCHLORIDE [Suspect]
     Indication: PANCREATIC CARCINOMA
     Dosage: 100 MG, UID/QD
     Route: 048
     Dates: start: 20111221

REACTIONS (1)
  - MUCOSAL INFLAMMATION [None]
